FAERS Safety Report 5133625-9 (Version None)
Quarter: 2006Q4

REPORT INFORMATION
  Report Type: 
  Country: None (occurrence: None)
  Receive Date: 20061024
  Receipt Date: 20060309
  Transmission Date: 20070319
  Serious: Yes (Other)
  Sender: FDA-Public Use
  Company Number: FR-ROCHE-439880

PATIENT
  Age: 52 Year
  Sex: Female
  Weight: 60 kg

DRUGS (2)
  1. ROFERON-A [Suspect]
     Indication: DESMOID TUMOUR
     Route: 058
     Dates: start: 20010615
  2. TAREG [Concomitant]
     Dosage: DRUG NAME REPORTED AS TAREG 150
     Route: 048

REACTIONS (2)
  - LIGHT CHAIN ANALYSIS [None]
  - LIGHT CHAIN ANALYSIS INCREASED [None]
